FAERS Safety Report 5177248-4 (Version None)
Quarter: 2006Q4

REPORT INFORMATION
  Report Type: 
  Country: None (occurrence: None)
  Receive Date: 20061218
  Receipt Date: 20060914
  Transmission Date: 20070319
  Serious: Yes (Disabling)
  Sender: FDA-Public Use
  Company Number: 2006PK02073

PATIENT
  Age: 896 Month
  Sex: Female
  Weight: 61 kg

DRUGS (8)
  1. ARIMIDEX [Suspect]
     Indication: BREAST CANCER METASTATIC
     Route: 048
     Dates: start: 20030118
  2. ISOPTIN [Concomitant]
  3. SALBUHEXAL [Concomitant]
     Route: 055
  4. WOBENZYM [Concomitant]
  5. GINKO BILOBA [Concomitant]
  6. VITAMIN B COMPLEX CAP [Concomitant]
  7. BALDRIAN [Concomitant]
  8. TRANXILIUM [Concomitant]

REACTIONS (4)
  - DEAFNESS UNILATERAL [None]
  - HEARING IMPAIRED [None]
  - PARAESTHESIA [None]
  - TINNITUS [None]
